FAERS Safety Report 6558615-0 (Version None)
Quarter: 2010Q1

REPORT INFORMATION
  Report Type: 
  Country: None (occurrence: None)
  Receive Date: 20100128
  Receipt Date: 20100128
  Transmission Date: 20100710
  Serious: No
  Sender: FDA-Public Use
  Company Number: None

PATIENT
  Age: 46 Year
  Sex: Female
  Weight: 110.6777 kg

DRUGS (1)
  1. ASMANEX INHALER 220 MCG. SCHERING [Suspect]
     Indication: ASTHMA
     Dosage: 1 PUFF 2X DAY INTRA
     Dates: start: 20091229, end: 20100124

REACTIONS (4)
  - COUGH [None]
  - INSOMNIA [None]
  - PHARYNGEAL OEDEMA [None]
  - SWELLING FACE [None]
